FAERS Safety Report 11927583 (Version 1)
Quarter: 2016Q1

REPORT INFORMATION
  Report Type: Report from Study
  Country: KR (occurrence: KR)
  Receive Date: 20160119
  Receipt Date: 20160119
  Transmission Date: 20160526
  Serious: Yes (Other)
  Sender: FDA-Public Use
  Company Number: KR-PFIZER INC-2016009527

PATIENT
  Age: 54 Year
  Sex: Female

DRUGS (3)
  1. GABAPENTIN. [Suspect]
     Active Substance: GABAPENTIN
     Indication: EPILEPSY
     Dosage: 900 MG, DAILY
  2. MILNACIPRAN [Suspect]
     Active Substance: MILNACIPRAN
     Indication: ANTIDEPRESSANT THERAPY
     Dosage: 25 MG, DAILY
  3. TELMISARTAN/AMLODIPINE [Suspect]
     Active Substance: AMLODIPINE\TELMISARTAN
     Indication: HYPERTENSION
     Dosage: TELMISARTAN 40 MG AMLODIPINE BESYLATE 6.935 MG , DAILY

REACTIONS (1)
  - Drug-induced liver injury [Unknown]
